FAERS Safety Report 5619761-9 (Version None)
Quarter: 2008Q1

REPORT INFORMATION
  Report Type: 
  Country: None (occurrence: None)
  Receive Date: 20080208
  Receipt Date: 20071220
  Transmission Date: 20080703
  Serious: No
  Sender: FDA-Public Use
  Company Number: A0699999A

PATIENT
  Age: 79 Year
  Sex: Female

DRUGS (5)
  1. ALTABAX [Suspect]
     Indication: WOUND INFECTION
     Route: 061
     Dates: start: 20071216
  2. LIBRIUM [Concomitant]
  3. SINEQUAN [Concomitant]
  4. LASIX [Concomitant]
  5. COUMADIN [Concomitant]

REACTIONS (3)
  - CHILLS [None]
  - DYSURIA [None]
  - POLLAKIURIA [None]
